FAERS Safety Report 11111784 (Version 1)
Quarter: 2015Q2

REPORT INFORMATION
  Report Type: Spontaneous
  Country: US (occurrence: US)
  Receive Date: 20150514
  Receipt Date: 20150514
  Transmission Date: 20150821
  Serious: No
  Sender: FDA-Public Use
  Company Number: US-ASTRAZENECA-2015SE41956

PATIENT
  Sex: Male

DRUGS (3)
  1. METFORMIN [Concomitant]
     Active Substance: METFORMIN HYDROCHLORIDE
     Route: 048
  2. BYDUREON [Suspect]
     Active Substance: EXENATIDE
     Route: 058
  3. BYETTA [Suspect]
     Active Substance: EXENATIDE
     Route: 058

REACTIONS (4)
  - Lyme disease [Unknown]
  - Abdominal discomfort [Unknown]
  - Visual impairment [Unknown]
  - Drug dose omission [Unknown]
